FAERS Safety Report 16498318 (Version 1)
Quarter: 2019Q2

REPORT INFORMATION
  Report Type: Spontaneous
  Country: US (occurrence: US)
  Receive Date: 20190629
  Receipt Date: 20190629
  Transmission Date: 20190711
  Serious: No
  Sender: FDA-Public Use
  Company Number: US-TEVA-2019-US-1059838

PATIENT
  Sex: Male

DRUGS (2)
  1. TADALAFIL 5MG TEVA [Suspect]
     Active Substance: TADALAFIL
     Indication: ERECTILE DYSFUNCTION
     Route: 065
     Dates: start: 201903
  2. CIALIS  MG [Concomitant]
     Dosage: FOR A FEW YEARS

REACTIONS (1)
  - Drug ineffective [Unknown]
